FAERS Safety Report 9454680 (Version 1)
Quarter: 2013Q3

REPORT INFORMATION
  Report Type: Spontaneous
  Country: PL (occurrence: PL)
  Receive Date: 20130812
  Receipt Date: 20130812
  Transmission Date: 20140515
  Serious: Yes (Hospitalization, Other)
  Sender: FDA-Public Use
  Company Number: PHHY2013PL080921

PATIENT
  Age: 58 Year
  Sex: Female

DRUGS (3)
  1. VALPROIC ACID [Suspect]
     Indication: MOOD DISORDER DUE TO A GENERAL MEDICAL CONDITION
     Dosage: UNK UKN, UNK
  2. CARBAMAZEPINE [Concomitant]
     Indication: MOOD DISORDER DUE TO A GENERAL MEDICAL CONDITION
     Dosage: UNK UKN, UNK
  3. ETHANOL [Concomitant]
     Dosage: UNK UKN, UNK

REACTIONS (11)
  - Toxicity to various agents [Recovered/Resolved]
  - Acute respiratory failure [Recovered/Resolved]
  - Lower respiratory tract infection [Recovered/Resolved]
  - Increased bronchial secretion [Recovered/Resolved]
  - Rales [Recovered/Resolved]
  - Pancytopenia [Recovered/Resolved]
  - Thrombocytopenia [Recovered/Resolved]
  - Epistaxis [Recovered/Resolved]
  - Scab [Recovered/Resolved]
  - Loss of consciousness [Recovered/Resolved]
  - Psychomotor hyperactivity [Recovered/Resolved]
